FAERS Safety Report 5425828-0 (Version None)
Quarter: 2007Q3

REPORT INFORMATION
  Report Type: 
  Country: None (occurrence: None)
  Receive Date: 20070827
  Receipt Date: 20070820
  Transmission Date: 20080115
  Serious: Yes (Hospitalization)
  Sender: FDA-Public Use
  Company Number: PHRM2007FR02044

PATIENT
  Age: 10 Year
  Sex: Female

DRUGS (2)
  1. RITALIN [Suspect]
     Indication: ATTENTION DEFICIT/HYPERACTIVITY DISORDER
     Dosage: 10 MG, QD
     Route: 048
     Dates: start: 20061001, end: 20070607
  2. RITALIN [Suspect]
     Dosage: 20 MG/DAY
     Route: 048
     Dates: start: 20070608, end: 20070618

REACTIONS (10)
  - AMNESIA [None]
  - CONVULSION [None]
  - DISORIENTATION [None]
  - DYSKINESIA [None]
  - FALL [None]
  - LOSS OF CONSCIOUSNESS [None]
  - MALAISE [None]
  - SCREAMING [None]
  - TONIC CLONIC MOVEMENTS [None]
  - VISION BLURRED [None]
